FAERS Safety Report 13271938 (Version 3)
Quarter: 2017Q2

REPORT INFORMATION
  Report Type: Spontaneous
  Country: US (occurrence: US)
  Receive Date: 20170227
  Receipt Date: 20170419
  Transmission Date: 20170830
  Serious: Yes (Death, Hospitalization)
  Sender: FDA-Public Use
  Company Number: US-B.I. PHARMACEUTICALS,INC./RIDGEFIELD-2017-BI-011311

PATIENT
  Sex: Male
  Weight: 97.52 kg

DRUGS (8)
  1. SPIRIVA [Suspect]
     Active Substance: TIOTROPIUM BROMIDE MONOHYDRATE
     Indication: PRODUCT USED FOR UNKNOWN INDICATION
     Dosage: QD;  FORM STRENGTH: 18 MCG; FORMULATION: CAPSULE? ADMINISTRATION CORRECT? YES ?ACTION(S) TAKEN WITH
     Route: 055
     Dates: start: 2002, end: 2010
  2. POTASSIUM CHLORIDE. [Concomitant]
     Active Substance: POTASSIUM CHLORIDE
     Indication: DIURETIC THERAPY
     Dosage: DOSE: 20 MILLIEQUIVALENTS (MEQ)
     Route: 065
  3. TORSEMIDE. [Concomitant]
     Active Substance: TORSEMIDE
     Indication: CARDIAC FAILURE CONGESTIVE
     Dosage: DOSE: 40 MG
     Route: 065
  4. POTASSIUM CHLORIDE. [Concomitant]
     Active Substance: POTASSIUM CHLORIDE
     Indication: HYPERTENSION
  5. WARFARIN [Concomitant]
     Active Substance: WARFARIN
     Indication: ATRIAL FIBRILLATION
     Dosage: DOSE: 3 MG
     Route: 048
  6. ATACAND [Concomitant]
     Active Substance: CANDESARTAN CILEXETIL
     Indication: HYPERTENSION
     Dosage: DOSE: 32 MG
     Route: 065
  7. DILTIAZEM  OD [Concomitant]
     Indication: HYPERTENSION
     Dosage: DOSE: 180
     Route: 065
  8. DILTIAZEM  OD [Concomitant]
     Indication: ATRIAL FIBRILLATION

REACTIONS (3)
  - Cardiomegaly [Unknown]
  - Heart rate irregular [Unknown]
  - Cardiac failure congestive [Fatal]
